FAERS Safety Report 10433211 (Version 1)
Quarter: 2014Q3

REPORT INFORMATION
  Report Type: Spontaneous
  Country: GB (occurrence: GB)
  Receive Date: 20140905
  Receipt Date: 20140905
  Transmission Date: 20150326
  Serious: Yes (Other)
  Sender: FDA-Public Use
  Company Number: GB-TEVA-504910ISR

PATIENT
  Age: 69 Year
  Sex: Female
  Weight: 75 kg

DRUGS (15)
  1. ADCAL-D3 [Concomitant]
     Active Substance: CALCIUM CARBONATE\CHOLECALCIFEROL
  2. ATORVASTATIN [Concomitant]
     Active Substance: ATORVASTATIN
  3. OMEPRAZOLE. [Concomitant]
     Active Substance: OMEPRAZOLE
  4. SERETIDE [Concomitant]
     Active Substance: FLUTICASONE FUROATE\SALMETEROL XINAFOATE
  5. BISOPROLOL [Concomitant]
     Active Substance: BISOPROLOL
  6. LISINOPRIL. [Concomitant]
     Active Substance: LISINOPRIL
  7. PARACETAMOL [Concomitant]
     Active Substance: ACETAMINOPHEN
  8. TAZOCIN [Concomitant]
     Active Substance: PIPERACILLIN SODIUM\TAZOBACTAM SODIUM
     Indication: PNEUMONIA
     Dates: start: 20140809
  9. WARFARIN [Suspect]
     Active Substance: WARFARIN
     Dates: end: 20140811
  10. DIGOXIN. [Concomitant]
     Active Substance: DIGOXIN
  11. MIRTAZAPINE. [Concomitant]
     Active Substance: MIRTAZAPINE
  12. FIDAXOMICIN [Interacting]
     Active Substance: FIDAXOMICIN
     Indication: CLOSTRIDIUM DIFFICILE INFECTION
     Dates: start: 20140807
  13. BUMETANIDE. [Concomitant]
     Active Substance: BUMETANIDE
  14. GABAPENTIN. [Concomitant]
     Active Substance: GABAPENTIN
  15. ORAMORPH SR SUSTAINED RELEASE [Concomitant]
     Active Substance: MORPHINE SULFATE

REACTIONS (2)
  - Drug interaction [Not Recovered/Not Resolved]
  - International normalised ratio increased [Not Recovered/Not Resolved]

NARRATIVE: CASE EVENT DATE: 20140808
